FAERS Safety Report 13141336 (Version 1)
Quarter: 2017Q1

REPORT INFORMATION
  Report Type: Spontaneous
  Country: US (occurrence: US)
  Receive Date: 20170123
  Receipt Date: 20170123
  Transmission Date: 20170428
  Serious: No
  Sender: FDA-Public Use
  Company Number: US-MYLANLABS-2016M1011135

PATIENT
  Sex: Male

DRUGS (1)
  1. PHENYTEK [Suspect]
     Active Substance: PHENYTOIN SODIUM
     Route: 048

REACTIONS (1)
  - Foreign body [Unknown]
